FAERS Safety Report 22897862 (Version 2)
Quarter: 2023Q4

REPORT INFORMATION
  Report Type: Spontaneous
  Country: US (occurrence: US)
  Receive Date: 20230903
  Receipt Date: 20231020
  Transmission Date: 20240109
  Serious: No
  Sender: FDA-Public Use
  Company Number: US-PHARMAESSENTIA CORPORATION-US-2023-PEC-001685

PATIENT
  Sex: Female

DRUGS (1)
  1. BESREMI [Suspect]
     Active Substance: ROPEGINTERFERON ALFA-2B-NJFT
     Indication: Polycythaemia
     Dosage: 150 MCG, Q2W
     Route: 058
     Dates: start: 20221201

REACTIONS (3)
  - Malaise [Unknown]
  - Sluggishness [Unknown]
  - Decreased appetite [Recovered/Resolved]
